FAERS Safety Report 15038225 (Version 1)
Quarter: 2018Q2

REPORT INFORMATION
  Report Type: Spontaneous
  Country: DE (occurrence: DE)
  Receive Date: 20180620
  Receipt Date: 20180620
  Transmission Date: 20180711
  Serious: Yes (Hospitalization)
  Sender: FDA-Public Use
  Company Number: DE-TEVA-2018-DE-908634

PATIENT
  Age: 80 Year
  Sex: Female

DRUGS (17)
  1. FUROSEMIDE. [Suspect]
     Active Substance: FUROSEMIDE
     Dosage: 40 MG, 1-1-0-0
     Route: 065
  2. METOPROLOL. [Concomitant]
     Active Substance: METOPROLOL
     Dosage: 47.5 MG, 1-0-1-0
     Route: 065
  3. SIMVASTATIN. [Concomitant]
     Active Substance: SIMVASTATIN
     Dosage: 40 MG, 0-0-0.5-0
     Route: 065
  4. MOLSIDOMIN [Concomitant]
     Active Substance: MOLSIDOMINE
     Dosage: 8 MG, 0-0-1-0
     Route: 065
  5. ALDACTONE [Suspect]
     Active Substance: SPIRONOLACTONE
     Dosage: 25 MG, 1-1-0-0
     Route: 065
  6. GLIMEPIRID [Concomitant]
     Active Substance: GLIMEPIRIDE
     Dosage: 2 MG, 1-0-0-0
     Route: 065
  7. IBUPROFEN. [Suspect]
     Active Substance: IBUPROFEN
     Dosage: 600 MG, 1-1-1-0
     Route: 065
  8. MOVICOL BEUTEL [Concomitant]
     Dosage: 1-0-0-0
     Route: 065
  9. PHENPROCOUMON [Concomitant]
     Active Substance: PHENPROCOUMON
     Dosage: 3 MG, BY SCHEME
     Route: 065
  10. ACETYLSALICYLSAEURE [Concomitant]
     Active Substance: ASPIRIN
     Dosage: 100 MG, 0-1-0-0
     Route: 065
  11. LEVEMIR FLEXPEN 100EINHEITEN/ML [Concomitant]
     Dosage: BY SCHEME
     Route: 065
  12. BERODUAL N [Concomitant]
     Active Substance: FENOTEROL HYDROBROMIDE\IPRATROPIUM BROMIDE
     Route: 065
  13. OMEPRAZOL [Concomitant]
     Active Substance: OMEPRAZOLE
     Dosage: 20 MG, 1-0-0-0
     Route: 065
  14. PREDNISON [Concomitant]
     Active Substance: PREDNISONE
     Dosage: 5 MG, 1-0-0-0
     Route: 065
  15. ACTRAPID FLEXPEN 100I.E./ML FERTIGPEN [Concomitant]
     Dosage: BY SCHEME
     Route: 065
  16. SPASMEX [Concomitant]
     Dosage: 15 MG, 1-1-1-0
     Route: 065
  17. THEOPHYLLIN [Concomitant]
     Active Substance: THEOPHYLLINE ANHYDROUS
     Dosage: 200 MG, 1-0-0-0
     Route: 065

REACTIONS (5)
  - Asthenia [Unknown]
  - Drug prescribing error [Unknown]
  - Dizziness [Unknown]
  - Fall [Unknown]
  - Urogenital haemorrhage [Unknown]
